FAERS Safety Report 9828323 (Version 2)
Quarter: 2014Q1

REPORT INFORMATION
  Report Type: Spontaneous
  Country: US (occurrence: US)
  Receive Date: 20140117
  Receipt Date: 20140124
  Transmission Date: 20141002
  Serious: Yes (Hospitalization)
  Sender: FDA-Public Use
  Company Number: US-GLAXOSMITHKLINE-A1032781A

PATIENT
  Age: 63 Year
  Sex: Female
  Weight: 72.2 kg

DRUGS (1)
  1. AVANDIA [Suspect]
     Indication: DIABETES MELLITUS
     Dosage: 2MG PER DAY
     Route: 048
     Dates: start: 20061031, end: 200708

REACTIONS (3)
  - Acute coronary syndrome [Unknown]
  - Coronary artery disease [Unknown]
  - Cardiac failure congestive [Unknown]
